FAERS Safety Report 20212802 (Version 1)
Quarter: 2021Q4

REPORT INFORMATION
  Report Type: Spontaneous
  Country: US (occurrence: US)
  Receive Date: 20211221
  Receipt Date: 20211221
  Transmission Date: 20220303
  Serious: Yes (Other)
  Sender: FDA-Public Use
  Company Number: US-CELGENE-USA-20211204798

PATIENT
  Sex: Male

DRUGS (2)
  1. POMALYST [Suspect]
     Active Substance: POMALIDOMIDE
     Indication: Plasma cell myeloma
     Dosage: 4 MILLIGRAM
     Route: 048
     Dates: start: 202104
  2. ASPIRIN [Concomitant]
     Active Substance: ASPIRIN
     Indication: Product used for unknown indication
     Route: 048

REACTIONS (1)
  - Squamous cell carcinoma of skin [Unknown]

NARRATIVE: CASE EVENT DATE: 20210101
